FAERS Safety Report 12687661 (Version 1)
Quarter: 2016Q3

REPORT INFORMATION
  Report Type: Spontaneous
  Country: US (occurrence: US)
  Receive Date: 20160826
  Receipt Date: 20160826
  Transmission Date: 20161109
  Serious: No
  Sender: FDA-Public Use
  Company Number: US-BEH-2016072074

PATIENT
  Age: 33 Year
  Sex: Female

DRUGS (1)
  1. HIZENTRA [Suspect]
     Active Substance: HUMAN IMMUNOGLOBULIN G
     Indication: IMMUNODEFICIENCY
     Dosage: 20 G, QW
     Route: 058
     Dates: start: 20160415

REACTIONS (2)
  - Sinusitis [Unknown]
  - Haematoma [Unknown]

NARRATIVE: CASE EVENT DATE: 201607
